FAERS Safety Report 24155056 (Version 2)
Quarter: 2024Q4

REPORT INFORMATION
  Report Type: Spontaneous
  Country: US (occurrence: US)
  Receive Date: 20240731
  Receipt Date: 20241004
  Transmission Date: 20250115
  Serious: No
  Sender: LUPIN
  Company Number: US-LUPIN PHARMACEUTICALS INC.-2024-06879

PATIENT

DRUGS (1)
  1. BUPROPION HYDROCHLORIDE [Suspect]
     Active Substance: BUPROPION HYDROCHLORIDE
     Indication: Product used for unknown indication
     Dosage: UNK, QD, (300 EXTENDED RELEASE)
     Route: 065

REACTIONS (6)
  - Adverse event [Recovered/Resolved]
  - Dehydration [Recovered/Resolved]
  - Palpitations [Recovered/Resolved]
  - Brain fog [Recovered/Resolved]
  - Headache [Unknown]
  - Fatigue [Recovered/Resolved]
